FAERS Safety Report 7545589 (Version 3)
Quarter: 2013Q3

REPORT INFORMATION
  Report Type: Spontaneous
  Country: US (occurrence: US)
  Receive Date: 20100818
  Receipt Date: 20130925
  Transmission Date: 20140515
  Serious: Yes (Other)
  Sender: FDA-Public Use
  Company Number: US-JNJFOC-20100804552

PATIENT
  Age: 46 Year
  Sex: 0

DRUGS (3)
  1. LEVAQUIN [Suspect]
     Indication: UPPER RESPIRATORY TRACT INFECTION
     Route: 048
     Dates: start: 20050101, end: 20081231
  2. LEVAQUIN [Suspect]
     Indication: PNEUMONIA
     Route: 048
     Dates: start: 20050101, end: 20081231
  3. LEVAQUIN [Suspect]
     Indication: BRONCHITIS
     Route: 048
     Dates: start: 20050101, end: 20081231

REACTIONS (3)
  - Rotator cuff syndrome [Unknown]
  - Bursitis [Unknown]
  - Tendonitis [Unknown]
